FAERS Safety Report 26001437 (Version 1)
Quarter: 2025Q4

REPORT INFORMATION
  Report Type: Report from Study
  Country: US (occurrence: US)
  Receive Date: 20251105
  Receipt Date: 20251105
  Transmission Date: 20260118
  Serious: Yes (Other)
  Sender: BRISTOL-MYERS SQUIBB COMPANY
  Company Number: US-CELGENE-USA-20220102631

PATIENT

DRUGS (2)
  1. AZACITIDINE [Suspect]
     Active Substance: AZACITIDINE
     Indication: Myelodysplastic syndrome
     Dosage: 75 MILLIGRAM/SQ. METER
     Route: 042
  2. OMACETAXINE [Suspect]
     Active Substance: OMACETAXINE
     Indication: Myelodysplastic syndrome
     Dosage: ON DAYS 1-7 OF A 28-DAY CYCLE WITH 4?DOSE COHORTS (0.75, 1.0 AND 1.25 MG/M 2, AND A DE-ESCALATION COHORT OF 0.5 MG/M 2)
     Route: 058

REACTIONS (2)
  - Hypoxia [Unknown]
  - Respiratory failure [Unknown]
